FAERS Safety Report 5469681-8 (Version None)
Quarter: 2007Q3

REPORT INFORMATION
  Report Type: 
  Country: None (occurrence: None)
  Receive Date: 20070924
  Receipt Date: 20070912
  Transmission Date: 20080115
  Serious: Yes (Hospitalization)
  Sender: FDA-Public Use
  Company Number: 237774K07USA

PATIENT
  Age: 55 Year
  Sex: Female
  Weight: 51.7101 kg

DRUGS (4)
  1. REBIF [Suspect]
     Indication: MULTIPLE SCLEROSIS
     Dosage: 44 MCG, 3 IN 1 WEEKS, SUBCUTANEOUS
     Route: 058
     Dates: start: 20060929
  2. NEURONTIN [Concomitant]
  3. LEXAPRO [Concomitant]
  4. FAMOTIDINE [Concomitant]

REACTIONS (4)
  - CORONARY ARTERY OCCLUSION [None]
  - MYOCARDIAL INFARCTION [None]
  - NEUROPATHY [None]
  - PARAESTHESIA [None]
